FAERS Safety Report 6460223-7 (Version None)
Quarter: 2009Q4

REPORT INFORMATION
  Report Type: 
  Country: None (occurrence: None)
  Receive Date: 20091130
  Receipt Date: 20091123
  Transmission Date: 20100525
  Serious: Yes (Other)
  Sender: FDA-Public Use
  Company Number: GB-RANBAXY-2009RR-29372

PATIENT
  Sex: Male
  Weight: 75 kg

DRUGS (9)
  1. PARACETAMOL [Suspect]
     Dosage: UNK MG, UNK
     Route: 048
  2. CYCLIZINE [Suspect]
     Dosage: 50 MG, TID
     Route: 051
  3. LOSEC [Suspect]
     Dosage: 40 MG, QD
     Route: 048
  4. NICOTINAMIDE [Suspect]
     Dosage: UNK
     Route: 042
  5. OCTREOTIDE ACETATE [Suspect]
     Route: 058
  6. PYRIDOXINE HYDROCHLORIDE [Suspect]
     Dosage: UNK
     Route: 042
  7. TYROSINE [Suspect]
     Dosage: UNK
     Route: 042
  8. FLUOXETINE [Concomitant]
     Route: 065
  9. MESALAZINE [Concomitant]
     Route: 065

REACTIONS (1)
  - HEPATIC ENZYME INCREASED [None]
